FAERS Safety Report 8473974-X (Version None)
Quarter: 2012Q2

REPORT INFORMATION
  Report Type: 
  Country: None (occurrence: None)
  Receive Date: 20120628
  Receipt Date: 20120604
  Transmission Date: 20120825
  Serious: Yes (Other)
  Sender: FDA-Public Use
  Company Number: US-MYLANLABS-2012S1004747

PATIENT
  Age: 39 Year
  Sex: Male
  Weight: 59 kg

DRUGS (4)
  1. THORAZINE [Concomitant]
  2. DEPAKOTE [Concomitant]
  3. CLOZAPINE [Suspect]
     Route: 048
     Dates: start: 20120226, end: 20120301
  4. THORAZINE [Concomitant]

REACTIONS (1)
  - GRANULOCYTOPENIA [None]
